FAERS Safety Report 8426269-4 (Version None)
Quarter: 2012Q2

REPORT INFORMATION
  Report Type: 
  Country: None (occurrence: None)
  Receive Date: 20120516
  Receipt Date: 20120504
  Transmission Date: 20120825
  Serious: Yes (Hospitalization)
  Sender: FDA-Public Use
  Company Number: 0228304

PATIENT
  Age: 24 Year
  Sex: Male

DRUGS (6)
  1. AMOXICILLIN [Suspect]
     Dosage: INTRAVENOUS
     Route: 042
     Dates: start: 20120219, end: 20120229
  2. IMIPENEM AND CILASTATIN [Suspect]
     Dosage: INTRAVENOUS
     Route: 042
     Dates: start: 20120306, end: 20120309
  3. PIPERACILLIN AND TAZOBACTAM [Suspect]
     Dosage: INTRAVENOUS
     Route: 042
     Dates: start: 20120306, end: 20120308
  4. TACHOSIL [Suspect]
     Indication: HAEMORRHAGE
     Dosage: 3 SPONGES IN 2 DAYS
     Dates: start: 20120309, end: 20120310
  5. GENTAMICIN [Suspect]
     Indication: PRODUCT USED FOR UNKNOWN INDICATION
     Dosage: INTRAVENOUS
     Route: 042
     Dates: start: 20120220, end: 20120229
  6. CEFOTAXIME [Suspect]
     Dosage: INTRAVENOUS
     Route: 042
     Dates: start: 20120308, end: 20120312

REACTIONS (15)
  - PULMONARY ALVEOLAR HAEMORRHAGE [None]
  - CITROBACTER INFECTION [None]
  - RENAL FAILURE [None]
  - ANTI FACTOR V ANTIBODY POSITIVE [None]
  - SHOCK HAEMORRHAGIC [None]
  - ENTEROCOCCAL SEPSIS [None]
  - EPISTAXIS [None]
  - CYTOLYTIC HEPATITIS [None]
  - SHOCK [None]
  - COAGULATION FACTOR V LEVEL DECREASED [None]
  - KLEBSIELLA INFECTION [None]
  - CERVIX HAEMATOMA UTERINE [None]
  - HAEMOTHORAX [None]
  - CARDIOGENIC SHOCK [None]
  - LUNG DISORDER [None]
